FAERS Safety Report 6718052-2 (Version None)
Quarter: 2010Q2

REPORT INFORMATION
  Report Type: 
  Country: None (occurrence: None)
  Receive Date: 20100510
  Receipt Date: 20100430
  Transmission Date: 20101027
  Serious: Yes (Other)
  Sender: FDA-Public Use
  Company Number: A0576381A

PATIENT
  Age: 80 Year
  Sex: Female

DRUGS (7)
  1. FLOVENT [Suspect]
     Indication: ASTHMA
     Dosage: 1PUFF TWICE PER DAY
     Route: 055
     Dates: start: 20100409
  2. COMBIVENT [Concomitant]
     Dosage: 2PUFF VARIABLE DOSE
     Route: 055
  3. THYROID TAB [Concomitant]
     Route: 048
  4. VITAMIN C [Concomitant]
  5. VITAMIN D [Concomitant]
  6. CALCIUM [Concomitant]
  7. THEOPHYLLINE [Concomitant]

REACTIONS (8)
  - CHEST DISCOMFORT [None]
  - DRUG INEFFECTIVE [None]
  - DYSPHONIA [None]
  - DYSPNOEA [None]
  - GAIT DISTURBANCE [None]
  - NO THERAPEUTIC RESPONSE [None]
  - PRODUCTIVE COUGH [None]
  - PULMONARY CONGESTION [None]
